FAERS Safety Report 4404360-7 (Version None)
Quarter: 2004Q3

REPORT INFORMATION
  Report Type: 
  Country: None (occurrence: None)
  Receive Date: 20040719
  Receipt Date: 20040706
  Transmission Date: 20050211
  Serious: Yes (Other)
  Sender: FDA-Public Use
  Company Number: DE-JNJFOC-20040701141

PATIENT
  Age: 62 Year
  Sex: Female
  Weight: 69 kg

DRUGS (3)
  1. REMICADE [Suspect]
     Indication: POLYARTHRITIS
     Dosage: 200 MG, 1 IN 7 WEEK, INTRAVENOUS
     Route: 042
  2. ARAVA [Suspect]
     Indication: POLYARTHRITIS
     Dosage: 20 MG, 1 IN 1 DAY, ORAL
     Route: 048
  3. PREDNISOLONE [Concomitant]
     Indication: POLYARTHRITIS
     Dosage: 7.5 MG, 1 IN 1 DAY, ORAL
     Route: 048

REACTIONS (3)
  - DRUG INTERACTION [None]
  - GASTROINTESTINAL DISORDER [None]
  - HYPERTENSIVE CRISIS [None]
